FAERS Safety Report 11363459 (Version 2)
Quarter: 2015Q3

REPORT INFORMATION
  Report Type: Spontaneous
  Country: FR (occurrence: FR)
  Receive Date: 20150811
  Receipt Date: 20150828
  Transmission Date: 20151125
  Serious: Yes (Other)
  Sender: FDA-Public Use
  Company Number: FR-ROCHE-1618207

PATIENT
  Sex: Male
  Weight: 72 kg

DRUGS (4)
  1. ZELBORAF [Suspect]
     Active Substance: VEMURAFENIB
     Indication: BRAF GENE MUTATION
     Dosage: 6 TABLETS DAILY.
     Route: 048
     Dates: start: 20150424
  2. ZELBORAF [Suspect]
     Active Substance: VEMURAFENIB
     Indication: MALIGNANT MELANOMA
     Dosage: 8 TABLETS DAILY.
     Route: 048
     Dates: start: 20140912
  3. ZELBORAF [Suspect]
     Active Substance: VEMURAFENIB
     Dosage: 8 TABLETS DAILY.
     Route: 048
     Dates: start: 20150801
  4. ZELBORAF [Suspect]
     Active Substance: VEMURAFENIB
     Route: 048
     Dates: start: 20140913

REACTIONS (12)
  - Pain in extremity [Recovered/Resolved]
  - Micturition urgency [Not Recovered/Not Resolved]
  - Ill-defined disorder [Not Recovered/Not Resolved]
  - Pruritus [Recovering/Resolving]
  - Hypohidrosis [Not Recovered/Not Resolved]
  - Hair growth abnormal [Unknown]
  - Lymphadenopathy [Recovered/Resolved]
  - Dry skin [Unknown]
  - Flatulence [Not Recovered/Not Resolved]
  - Photosensitivity reaction [Recovered/Resolved]
  - Dry skin [Recovered/Resolved]
  - Rash [Unknown]

NARRATIVE: CASE EVENT DATE: 20140920
